FAERS Safety Report 24648778 (Version 1)
Quarter: 2024Q4

REPORT INFORMATION
  Report Type: Spontaneous
  Country: AU (occurrence: AU)
  Receive Date: 20241121
  Receipt Date: 20241121
  Transmission Date: 20250115
  Serious: Yes (Other)
  Sender: MYLAN
  Company Number: AU-MYLANLABS-2024M1103478

PATIENT
  Age: 59 Year
  Sex: Female

DRUGS (4)
  1. NITROGLYCERIN [Suspect]
     Active Substance: NITROGLYCERIN
     Indication: Hypertension
     Dosage: UNK
     Route: 065
  2. NITROGLYCERIN [Suspect]
     Active Substance: NITROGLYCERIN
     Indication: Hypertension
     Dosage: UNK
     Route: 048
  3. POLIHEXANIDE [Concomitant]
     Active Substance: POLIHEXANIDE
     Indication: Complication associated with device
     Dosage: UNK
     Route: 065
  4. POLIHEXANIDE [Concomitant]
     Active Substance: POLIHEXANIDE
     Indication: Device related infection

REACTIONS (2)
  - Withdrawal hypertension [Recovering/Resolving]
  - Off label use [Unknown]
